FAERS Safety Report 26161211 (Version 1)
Quarter: 2025Q4

REPORT INFORMATION
  Report Type: Report from Study
  Country: GB (occurrence: GB)
  Receive Date: 20251216
  Receipt Date: 20251216
  Transmission Date: 20260118
  Serious: Yes (Death)
  Sender: CELLTRION
  Company Number: GB-CELLTRION INC.-2025GB044921

PATIENT

DRUGS (1)
  1. INFLIXIMAB-DYYB [Suspect]
     Active Substance: INFLIXIMAB-DYYB
     Indication: Crohn^s disease
     Dosage: 120MG PEN PK2
     Route: 058
     Dates: start: 202504

REACTIONS (1)
  - Death [Fatal]
